FAERS Safety Report 22534725 (Version 1)
Quarter: 2023Q2

REPORT INFORMATION
  Report Type: Spontaneous
  Country: US (occurrence: US)
  Receive Date: 20230608
  Receipt Date: 20230608
  Transmission Date: 20230721
  Serious: No
  Sender: FDA-Public Use
  Company Number: US-AUROBINDO-AUR-APL-2023-006235

PATIENT
  Age: 31 Year
  Sex: Male
  Weight: 99.7 kg

DRUGS (1)
  1. LORATADINE [Suspect]
     Active Substance: LORATADINE
     Indication: Product used for unknown indication
     Dosage: 30 MILLIGRAM (3 TABLETS)
     Route: 065
     Dates: start: 20230201

REACTIONS (2)
  - Vomiting [Unknown]
  - Drug ineffective [Unknown]
